FAERS Safety Report 7321921-6 (Version None)
Quarter: 2011Q1

REPORT INFORMATION
  Report Type: 
  Country: None (occurrence: None)
  Receive Date: 20110228
  Receipt Date: 20110114
  Transmission Date: 20110831
  Serious: Yes (Death, Other)
  Sender: FDA-Public Use
  Company Number: US-BAXTER-2010BH007380

PATIENT
  Age: 89 Year
  Sex: Female

DRUGS (90)
  1. HEPARIN SODIUM INJECTION [Suspect]
     Route: 058
     Dates: start: 20080102, end: 20080116
  2. HEPARIN SODIUM INJECTION [Suspect]
     Route: 065
     Dates: start: 20080111, end: 20080111
  3. HEPARIN SODIUM INJECTION [Suspect]
     Route: 065
  4. HEPARIN SODIUM INJECTION [Suspect]
     Route: 065
  5. HEPARIN SODIUM INJECTION [Suspect]
     Route: 065
     Dates: start: 20080114, end: 20080114
  6. HEPARIN SODIUM INJECTION [Suspect]
     Route: 065
     Dates: start: 20080102, end: 20080102
  7. HEPARIN SODIUM INJECTION [Suspect]
     Route: 065
     Dates: start: 20071130, end: 20071130
  8. HEPARIN SODIUM INJECTION [Suspect]
     Route: 065
     Dates: start: 20080109, end: 20080109
  9. HEPARIN SODIUM INJECTION [Suspect]
     Route: 065
     Dates: start: 20080116, end: 20080116
  10. HEPARIN SODIUM INJECTION [Suspect]
     Route: 065
     Dates: start: 20071230, end: 20071230
  11. HEPARIN SODIUM INJECTION [Suspect]
     Route: 065
     Dates: start: 20080116, end: 20080116
  12. HEPARIN SODIUM INJECTION [Suspect]
     Route: 042
     Dates: start: 20080718, end: 20080718
  13. PLAVIX [Suspect]
     Indication: STENT PLACEMENT
     Route: 065
  14. LORATADINE [Concomitant]
     Indication: PRODUCT USED FOR UNKNOWN INDICATION
     Route: 065
  15. PREVACID [Concomitant]
     Indication: PRODUCT USED FOR UNKNOWN INDICATION
     Route: 065
  16. IRON [Concomitant]
     Indication: PRODUCT USED FOR UNKNOWN INDICATION
     Route: 065
  17. EPOGEN [Concomitant]
     Indication: PRODUCT USED FOR UNKNOWN INDICATION
     Route: 065
  18. DOCUSATE CALCIUM [Concomitant]
     Indication: PRODUCT USED FOR UNKNOWN INDICATION
     Route: 065
  19. NOVOLIN R [Concomitant]
     Indication: PRODUCT USED FOR UNKNOWN INDICATION
     Route: 065
  20. ALBUTEROL [Concomitant]
     Indication: PRODUCT USED FOR UNKNOWN INDICATION
     Route: 055
  21. HEPARIN SODIUM INJECTION [Suspect]
     Route: 065
  22. HEPARIN SODIUM INJECTION [Suspect]
     Route: 065
     Dates: start: 20071130, end: 20071130
  23. HEPARIN SODIUM INJECTION [Suspect]
     Route: 065
     Dates: start: 20080116, end: 20080116
  24. HEPARIN SODIUM INJECTION [Suspect]
     Route: 065
     Dates: start: 20080702, end: 20080718
  25. HEPARIN SODIUM INJECTION [Suspect]
     Route: 065
     Dates: start: 20080702, end: 20080718
  26. PROCRIT [Concomitant]
     Indication: PRODUCT USED FOR UNKNOWN INDICATION
     Route: 065
  27. SIMVASTATIN [Concomitant]
     Indication: PRODUCT USED FOR UNKNOWN INDICATION
     Route: 065
  28. HEPARIN SODIUM INJECTION [Suspect]
     Route: 065
     Dates: start: 20071001, end: 20071001
  29. HEPARIN SODIUM INJECTION [Suspect]
     Route: 065
     Dates: start: 20080114, end: 20080114
  30. HEPARIN SODIUM INJECTION [Suspect]
     Route: 065
     Dates: start: 20080102, end: 20080102
  31. HEPARIN SODIUM INJECTION [Suspect]
     Route: 065
     Dates: start: 20080109, end: 20080109
  32. HEPARIN SODIUM INJECTION [Suspect]
     Route: 065
     Dates: start: 20071203, end: 20071203
  33. HEPARIN SODIUM INJECTION [Suspect]
     Route: 042
     Dates: start: 20080709, end: 20080709
  34. HEPARIN SODIUM INJECTION [Suspect]
     Route: 042
     Dates: start: 20080709, end: 20080709
  35. HEPARIN SODIUM INJECTION [Suspect]
     Route: 042
     Dates: start: 20080711, end: 20080711
  36. DILTIAZEM [Concomitant]
     Indication: PRODUCT USED FOR UNKNOWN INDICATION
     Route: 065
  37. HEPARIN SODIUM INJECTION [Suspect]
     Route: 042
     Dates: start: 20080318, end: 20080318
  38. HEPARIN SODIUM INJECTION [Suspect]
     Route: 042
     Dates: start: 20080318, end: 20080318
  39. HEPARIN SODIUM INJECTION [Suspect]
     Route: 065
     Dates: start: 20080104, end: 20080104
  40. HEPARIN SODIUM INJECTION [Suspect]
     Route: 065
     Dates: start: 20071116, end: 20071116
  41. HEPARIN SODIUM INJECTION [Suspect]
     Route: 065
     Dates: start: 20080114, end: 20080114
  42. HEPARIN SODIUM INJECTION [Suspect]
     Route: 065
     Dates: start: 20071116, end: 20071116
  43. HEPARIN SODIUM INJECTION [Suspect]
     Route: 065
     Dates: start: 20080102, end: 20080102
  44. HEPARIN SODIUM INJECTION [Suspect]
     Route: 065
     Dates: start: 20071130, end: 20071130
  45. HEPARIN SODIUM INJECTION [Suspect]
     Route: 065
     Dates: start: 20071130, end: 20071130
  46. HEPARIN SODIUM INJECTION [Suspect]
     Route: 065
     Dates: start: 20080109, end: 20080109
  47. HEPARIN SODIUM INJECTION [Suspect]
     Route: 065
     Dates: start: 20071230, end: 20071230
  48. HEPARIN SODIUM INJECTION [Suspect]
     Route: 042
     Dates: start: 20080718, end: 20080718
  49. CLARITIN [Concomitant]
     Indication: PRODUCT USED FOR UNKNOWN INDICATION
     Route: 065
  50. HEPARIN SODIUM INJECTION [Suspect]
     Route: 065
     Dates: start: 20080111, end: 20080111
  51. HEPARIN SODIUM INJECTION [Suspect]
     Route: 065
     Dates: start: 20071001, end: 20071001
  52. HEPARIN SODIUM INJECTION [Suspect]
     Route: 065
     Dates: start: 20080114, end: 20080114
  53. HEPARIN SODIUM INJECTION [Suspect]
     Route: 065
     Dates: start: 20080102, end: 20080102
  54. HEPARIN SODIUM INJECTION [Suspect]
     Route: 065
     Dates: start: 20071203, end: 20071203
  55. HEPARIN SODIUM INJECTION [Suspect]
     Route: 065
     Dates: start: 20071203, end: 20071203
  56. HEPARIN SODIUM INJECTION [Suspect]
     Route: 065
     Dates: start: 20071203, end: 20071203
  57. HEPARIN SODIUM INJECTION [Suspect]
     Route: 040
     Dates: start: 20080602, end: 20080709
  58. LOVENOX [Suspect]
     Indication: THROMBOSIS PROPHYLAXIS
     Route: 065
  59. LANSOPRAZOLE [Concomitant]
     Indication: PRODUCT USED FOR UNKNOWN INDICATION
     Route: 065
  60. PROTEIN SUPPLEMENTS [Concomitant]
     Indication: PRODUCT USED FOR UNKNOWN INDICATION
     Route: 048
  61. HEPARIN SODIUM INJECTION [Suspect]
     Route: 058
     Dates: start: 20080116, end: 20080124
  62. HEPARIN SODIUM INJECTION [Suspect]
     Route: 058
     Dates: start: 20080116, end: 20080124
  63. HEPARIN SODIUM INJECTION [Suspect]
     Route: 065
     Dates: start: 20080111, end: 20080111
  64. HEPARIN SODIUM INJECTION [Suspect]
     Route: 065
     Dates: start: 20080104, end: 20080104
  65. HEPARIN SODIUM INJECTION [Suspect]
     Route: 065
     Dates: start: 20080104, end: 20080104
  66. HEPARIN SODIUM INJECTION [Suspect]
     Route: 065
     Dates: start: 20080104, end: 20080104
  67. HEPARIN SODIUM INJECTION [Suspect]
     Route: 065
     Dates: start: 20071116, end: 20071116
  68. HEPARIN SODIUM INJECTION [Suspect]
     Route: 065
     Dates: start: 20080109, end: 20080109
  69. HEPARIN SODIUM INJECTION [Suspect]
     Route: 065
     Dates: start: 20071230, end: 20071230
  70. HEPARIN SODIUM INJECTION [Suspect]
     Route: 065
     Dates: start: 20071230, end: 20071230
  71. HEPARIN SODIUM INJECTION [Suspect]
     Route: 042
     Dates: start: 20080711, end: 20080711
  72. ACETAMINOPHEN [Concomitant]
     Indication: PRODUCT USED FOR UNKNOWN INDICATION
     Route: 065
  73. HEPARIN SODIUM INJECTION [Suspect]
     Indication: THROMBOSIS PROPHYLAXIS
     Route: 042
     Dates: start: 20070917, end: 20070917
  74. HEPARIN SODIUM INJECTION [Suspect]
     Route: 065
     Dates: start: 20080111, end: 20080111
  75. HEPARIN SODIUM INJECTION [Suspect]
     Route: 065
     Dates: start: 20071001, end: 20071001
  76. HEPARIN SODIUM INJECTION [Suspect]
     Route: 065
     Dates: start: 20080116, end: 20080116
  77. HEPARIN SODIUM INJECTION [Suspect]
     Route: 040
     Dates: start: 20080602, end: 20080709
  78. PRIMAXIN [Concomitant]
     Indication: PRODUCT USED FOR UNKNOWN INDICATION
     Route: 065
  79. ATROVENT [Concomitant]
     Indication: PRODUCT USED FOR UNKNOWN INDICATION
     Route: 055
  80. HEPARIN SODIUM INJECTION [Suspect]
     Indication: HAEMODIALYSIS
     Route: 042
     Dates: start: 20070917, end: 20070917
  81. HEPARIN SODIUM INJECTION [Suspect]
     Route: 058
     Dates: start: 20080102, end: 20080116
  82. HEPARIN SODIUM INJECTION [Suspect]
     Route: 065
     Dates: start: 20071001, end: 20071001
  83. HEPARIN SODIUM INJECTION [Suspect]
     Route: 065
  84. HEPARIN SODIUM INJECTION [Suspect]
     Route: 065
     Dates: start: 20071116, end: 20071116
  85. HEPARIN SODIUM INJECTION [Suspect]
     Route: 042
     Dates: start: 20080714, end: 20080714
  86. HEPARIN SODIUM INJECTION [Suspect]
     Route: 042
     Dates: start: 20080714, end: 20080714
  87. ASCORBIC ACID [Concomitant]
     Indication: PRODUCT USED FOR UNKNOWN INDICATION
     Route: 065
  88. FOSAMAX [Concomitant]
     Indication: PRODUCT USED FOR UNKNOWN INDICATION
     Route: 065
  89. CASPOFUNGIN [Concomitant]
     Indication: PRODUCT USED FOR UNKNOWN INDICATION
     Route: 065
  90. CYANOCOBALAMIN [Concomitant]
     Indication: PRODUCT USED FOR UNKNOWN INDICATION
     Route: 065

REACTIONS (32)
  - ATRIAL FIBRILLATION [None]
  - DIVERTICULITIS [None]
  - FLUSHING [None]
  - HEADACHE [None]
  - HYPOTENSION [None]
  - UROSEPSIS [None]
  - OEDEMA [None]
  - LETHARGY [None]
  - RECTAL HAEMORRHAGE [None]
  - ANAEMIA [None]
  - SYSTEMIC CANDIDA [None]
  - HYPERHIDROSIS [None]
  - LACRIMATION INCREASED [None]
  - UNRESPONSIVE TO STIMULI [None]
  - DIARRHOEA [None]
  - DYSKINESIA [None]
  - CARDIAC FAILURE CONGESTIVE [None]
  - SEPSIS [None]
  - URINARY TRACT INFECTION [None]
  - PERIPHERAL COLDNESS [None]
  - BLISTER [None]
  - RENAL FAILURE CHRONIC [None]
  - LOWER GASTROINTESTINAL HAEMORRHAGE [None]
  - PULMONARY OEDEMA [None]
  - CHRONIC RESPIRATORY FAILURE [None]
  - RENAL IMPAIRMENT [None]
  - LUNG INFILTRATION [None]
  - ABDOMINAL PAIN [None]
  - VOMITING [None]
  - SKIN DISORDER [None]
  - MENTAL STATUS CHANGES [None]
  - THIRST [None]
